FAERS Safety Report 6035080-3 (Version None)
Quarter: 2009Q1

REPORT INFORMATION
  Report Type: 
  Country: None (occurrence: None)
  Receive Date: 20090112
  Receipt Date: 20090107
  Transmission Date: 20090719
  Serious: Yes (Other)
  Sender: FDA-Public Use
  Company Number: US-ROXANE LABORATORIES, INC.-2009-RO-00029RO

PATIENT
  Age: 77 Year
  Sex: Female

DRUGS (10)
  1. METHOTREXATE [Suspect]
     Indication: PSORIASIS
     Route: 048
  2. METHOTREXATE [Suspect]
     Indication: PSORIATIC ARTHROPATHY
  3. ALEFACEPT [Suspect]
     Route: 030
     Dates: start: 20031210, end: 20031224
  4. NEURONTIN [Suspect]
  5. ATORVASTATIN CALCIUM [Suspect]
  6. CEPHALEXIN [Suspect]
  7. VICODIN [Suspect]
  8. LANSOPRAZOLE [Suspect]
  9. TRIAMCINOLONE [Suspect]
  10. BETAMETHASONE [Suspect]

REACTIONS (2)
  - ANAEMIA [None]
  - CD4 LYMPHOCYTES DECREASED [None]
